FAERS Safety Report 5201892-9 (Version None)
Quarter: 2006Q4

REPORT INFORMATION
  Report Type: 
  Country: None (occurrence: None)
  Receive Date: 20061010
  Receipt Date: 20051109
  Transmission Date: 20070319
  Serious: Yes (Hospitalization, Other)
  Sender: FDA-Public Use
  Company Number: 2005-11-0600

PATIENT
  Sex: Female

DRUGS (2)
  1. TEMODAR [Suspect]
     Indication: GLIOBLASTOMA MULTIFORME
     Dosage: SEE IMAGE
     Route: 048
     Dates: start: 20051107, end: 20051108
  2. TEMODAR [Suspect]
     Indication: GLIOBLASTOMA MULTIFORME
     Dosage: SEE IMAGE
     Route: 048
     Dates: start: 20051111

REACTIONS (6)
  - CONVULSION [None]
  - DYSPHAGIA [None]
  - INTENTIONAL DRUG MISUSE [None]
  - INTERNATIONAL NORMALISED RATIO ABNORMAL [None]
  - MEDICATION ERROR [None]
  - PLATELET COUNT INCREASED [None]
